FAERS Safety Report 7229234-8 (Version None)
Quarter: 2011Q1

REPORT INFORMATION
  Report Type: 
  Country: None (occurrence: None)
  Receive Date: 20110117
  Receipt Date: 20110104
  Transmission Date: 20110831
  Serious: Yes (Other)
  Sender: FDA-Public Use
  Company Number: US-ELI_LILLY_AND_COMPANY-US201101001146

PATIENT
  Age: 42 Year
  Sex: Male

DRUGS (2)
  1. PROZAC [Suspect]
     Indication: DEPRESSION
     Dosage: UNK, UNKNOWN
  2. CYMBALTA [Suspect]
     Indication: DEPRESSION
     Dosage: UNK, UNKNOWN

REACTIONS (6)
  - HOMICIDE [None]
  - DEPRESSED MOOD [None]
  - MANIA [None]
  - BIPOLAR DISORDER [None]
  - ABNORMAL BEHAVIOUR [None]
  - DRUG EXPOSURE BEFORE PREGNANCY [None]
